FAERS Safety Report 14953862 (Version 1)
Quarter: 2018Q2

REPORT INFORMATION
  Report Type: Spontaneous
  Country: AU (occurrence: AU)
  Receive Date: 20180530
  Receipt Date: 20180530
  Transmission Date: 20180711
  Serious: Yes (Hospitalization, Other)
  Sender: FDA-Public Use
  Company Number: AU-MYLANLABS-2018M1034991

PATIENT
  Age: 56 Year
  Sex: Male

DRUGS (1)
  1. EMTRICITABINE/TENOFOVIR DISOPROXIL FUMARATE [Suspect]
     Active Substance: EMTRICITABINE\TENOFOVIR DISOPROXIL FUMARATE
     Indication: PRODUCT USED FOR UNKNOWN INDICATION
     Dosage: UNK
     Route: 048
     Dates: start: 20171214, end: 20180330

REACTIONS (4)
  - Aortic valve incompetence [None]
  - Cerebrovascular accident [Recovered/Resolved]
  - Aortic dilatation [None]
  - Ear disorder [None]

NARRATIVE: CASE EVENT DATE: 20180330
